FAERS Safety Report 22884299 (Version 8)
Quarter: 2024Q1

REPORT INFORMATION
  Report Type: Report from Study
  Country: EG (occurrence: EG)
  Receive Date: 20230830
  Receipt Date: 20240215
  Transmission Date: 20240410
  Serious: Yes (Life-Threatening, Other)
  Sender: FDA-Public Use
  Company Number: EG-002147023-NVSC2023EG187638

PATIENT
  Age: 39 Year
  Sex: Male

DRUGS (10)
  1. COSENTYX [Suspect]
     Active Substance: SECUKINUMAB
     Indication: Psoriatic arthropathy
     Dosage: 1 DOSAGE FORM (300 MG), QMO
     Route: 058
     Dates: start: 20230801
  2. COSENTYX [Suspect]
     Active Substance: SECUKINUMAB
     Indication: Skin lesion
     Dosage: 150 MG, UNKNOWN
     Route: 058
  3. COSENTYX [Suspect]
     Active Substance: SECUKINUMAB
     Dosage: 1 DOSAGE FORM (ONE PREFILLED SUBCUTANEOUS PEN OF COSENTYX 300MG EVERY MONTH AS MAINTENANCE)
     Route: 058
     Dates: end: 202309
  4. VITAMIN B6 [Concomitant]
     Active Substance: PYRIDOXINE HYDROCHLORIDE
     Indication: Nervousness
     Dosage: UNK (DEPOVIT ) (TOGETHER SIMULTANEOUSY) L (TOOK THESE VITAMINS 4 TIMES), THE PATIENT TOOK THEM BASED
     Route: 065
     Dates: start: 20230808
  5. CLEAREST [Concomitant]
     Indication: Allergy prophylaxis
     Dosage: 1 DOSAGE FORM, QD, STARTED BEFORE COSENTYX
     Route: 065
  6. DAIVOBET [Concomitant]
     Active Substance: BETAMETHASONE DIPROPIONATE\CALCIPOTRIENE
     Indication: Product used for unknown indication
     Dosage: UNK, THE PATIENT STATED THAT HE DIDN^T TAKE THIS MEDICATION  BEFORE SO THIS MEDICATION WAS CANCELED
     Route: 065
  7. ASPIRIN [Concomitant]
     Active Substance: ASPIRIN
     Indication: Prophylaxis
     Dosage: 1 DOSAGE FORM, QD
     Route: 065
     Dates: start: 20230822, end: 20230823
  8. VITAMIN B12 [Concomitant]
     Active Substance: CYANOCOBALAMIN
     Indication: Nervousness
     Dosage: UNK ((DEPOVIT ) (TOGETHER SIMULTANEOUSY) L(TOOK THESE VITAMINS 4 TIMES), THE PATIENT STATED THAT HE
     Route: 065
     Dates: start: 20230808
  9. HUMIRA [Concomitant]
     Active Substance: ADALIMUMAB
     Indication: Product used for unknown indication
     Dosage: UNK
     Route: 065
  10. CORTISONE [Concomitant]
     Active Substance: CORTISONE
     Indication: Product used for unknown indication
     Dosage: UNK
     Route: 065

REACTIONS (54)
  - Dyspnoea [Not Recovered/Not Resolved]
  - Chest discomfort [Not Recovered/Not Resolved]
  - Chest pain [Not Recovered/Not Resolved]
  - Pain [Not Recovered/Not Resolved]
  - Dyschezia [Not Recovered/Not Resolved]
  - Disturbance in attention [Not Recovered/Not Resolved]
  - Toothache [Not Recovered/Not Resolved]
  - Gingival pain [Not Recovered/Not Resolved]
  - Gastrooesophageal reflux disease [Not Recovered/Not Resolved]
  - Subcutaneous abscess [Not Recovered/Not Resolved]
  - Gait disturbance [Not Recovered/Not Resolved]
  - Fungal skin infection [Recovering/Resolving]
  - Rash erythematous [Recovering/Resolving]
  - Pain in extremity [Recovering/Resolving]
  - Dermatitis [Recovering/Resolving]
  - Skin exfoliation [Not Recovered/Not Resolved]
  - Condition aggravated [Not Recovered/Not Resolved]
  - Feeling hot [Not Recovered/Not Resolved]
  - Back pain [Not Recovered/Not Resolved]
  - Fatigue [Not Recovered/Not Resolved]
  - Heart rate abnormal [Not Recovered/Not Resolved]
  - Heart rate increased [Not Recovered/Not Resolved]
  - Acne [Not Recovered/Not Resolved]
  - Hepatic steatosis [Recovered/Resolved]
  - Flatulence [Recovered/Resolved]
  - Hypoaesthesia [Recovered/Resolved]
  - Gingival discomfort [Not Recovered/Not Resolved]
  - Mouth ulceration [Not Recovered/Not Resolved]
  - Oral discomfort [Not Recovered/Not Resolved]
  - Gastric ulcer [Not Recovered/Not Resolved]
  - Throat irritation [Not Recovered/Not Resolved]
  - Psoriatic arthropathy [Unknown]
  - Injection site haemorrhage [Recovered/Resolved]
  - Injection site mass [Recovered/Resolved]
  - Injection site pain [Unknown]
  - Injection site mass [Recovered/Resolved]
  - Poor quality sleep [Unknown]
  - Mucous stools [Not Recovered/Not Resolved]
  - Spinal disorder [Unknown]
  - Urine abnormality [Not Recovered/Not Resolved]
  - Dizziness [Not Recovered/Not Resolved]
  - Peripheral swelling [Recovering/Resolving]
  - Nausea [Not Recovered/Not Resolved]
  - Nervous system disorder [Unknown]
  - Nasopharyngitis [Unknown]
  - Balance disorder [Not Recovered/Not Resolved]
  - Neoplasm [Unknown]
  - Decreased immune responsiveness [Unknown]
  - Fear [Not Recovered/Not Resolved]
  - Skin lesion [Unknown]
  - Symptom recurrence [Unknown]
  - Inappropriate schedule of product administration [Unknown]
  - Product use in unapproved indication [Unknown]
  - Drug ineffective [Not Recovered/Not Resolved]

NARRATIVE: CASE EVENT DATE: 20230801
